FAERS Safety Report 23313150 (Version 4)
Quarter: 2024Q1

REPORT INFORMATION
  Report Type: Report from Study
  Country: US (occurrence: US)
  Receive Date: 20231219
  Receipt Date: 20240301
  Transmission Date: 20240410
  Serious: Yes (Death, Hospitalization, Other)
  Sender: FDA-Public Use
  Company Number: US-JNJFOC-20231155281

PATIENT
  Age: 51 Year
  Sex: Male

DRUGS (1)
  1. REMICADE [Suspect]
     Active Substance: INFLIXIMAB
     Indication: Product used for unknown indication
     Dosage: POSSIBLY STARTED ON 06-JUN-2022
     Route: 041

REACTIONS (9)
  - Gastrointestinal haemorrhage [Fatal]
  - Intestinal ischaemia [Fatal]
  - Hypotension [Fatal]
  - Septic shock [Fatal]
  - Bacteraemia [Unknown]
  - Pneumonia [Unknown]
  - Immunosuppression [Unknown]
  - Spinal fracture [Unknown]
  - Haematoma [Unknown]

NARRATIVE: CASE EVENT DATE: 20231104
